FAERS Safety Report 21726552 (Version 1)
Quarter: 2022Q4

REPORT INFORMATION
  Report Type: Spontaneous
  Country: BE (occurrence: BE)
  Receive Date: 20221214
  Receipt Date: 20221214
  Transmission Date: 20230113
  Serious: Yes (Hospitalization)
  Sender: FDA-Public Use
  Company Number: None

PATIENT
  Age: 70 Year
  Sex: Male
  Weight: 64 kg

DRUGS (6)
  1. PACLITAXEL [Suspect]
     Active Substance: PACLITAXEL
     Indication: Benign oesophageal neoplasm
     Dosage: STRENGTH: 6 MG/ML,
     Dates: start: 20210927, end: 20211011
  2. BUPRENORPHINE [Concomitant]
     Active Substance: BUPRENORPHINE
     Dosage: STRENGTH: 35 MICROGRAMS/H
  3. BROTIZOLAM [Concomitant]
     Active Substance: BROTIZOLAM
     Dosage: STRENGTH: 0.25MG
  4. CEFUROXIME [Concomitant]
     Active Substance: CEFUROXIME
     Dosage: STRENGTH: 1500 MG
  5. Pantomed [Concomitant]
     Dosage: STRENGTH: 40 MG
  6. INDACATEROL [Concomitant]
     Active Substance: INDACATEROL
     Dosage: STRENGTH: 150 UG INHALATION CAPSULES

REACTIONS (4)
  - Feeling hot [Recovered/Resolved]
  - Chest pain [Recovered/Resolved]
  - Sense of oppression [Recovered/Resolved]
  - Muscle spasms [Recovered/Resolved]

NARRATIVE: CASE EVENT DATE: 20211011
